FAERS Safety Report 6912442-0 (Version None)
Quarter: 2010Q3

REPORT INFORMATION
  Report Type: 
  Country: None (occurrence: None)
  Receive Date: 20100806
  Receipt Date: 20081007
  Transmission Date: 20110219
  Serious: No
  Sender: FDA-Public Use
  Company Number: US-PFIZER INC-2008041528

PATIENT
  Sex: Female
  Weight: 59.1 kg

DRUGS (7)
  1. DETROL LA [Suspect]
     Indication: BLADDER DISORDER
     Dates: start: 20050101, end: 20080501
  2. PLENDIL [Concomitant]
  3. TIAZAC [Concomitant]
  4. FOSAMAX [Concomitant]
  5. KLONOPIN [Concomitant]
  6. LUNESTA [Concomitant]
  7. CHEMOTHERAPY NOS [Concomitant]

REACTIONS (1)
  - MEMORY IMPAIRMENT [None]
